FAERS Safety Report 7085364-5 (Version None)
Quarter: 2010Q4

REPORT INFORMATION
  Report Type: 
  Country: None (occurrence: None)
  Receive Date: 20101105
  Receipt Date: 20101028
  Transmission Date: 20110411
  Serious: Yes (Other)
  Sender: FDA-Public Use
  Company Number: US-GENZYME-THYM-1002018

PATIENT
  Age: 43 Year
  Sex: Female

DRUGS (8)
  1. THYMOGLOBULIN [Suspect]
     Indication: PROPHYLAXIS AGAINST TRANSPLANT REJECTION
     Dosage: 7 DOSES OF 1.5 MG/KG
     Route: 042
     Dates: start: 20090701
  2. HEPARIN [Concomitant]
     Indication: ANTICOAGULANT THERAPY
     Dosage: UNK
     Route: 042
  3. WARFARIN SODIUM [Concomitant]
     Indication: ANTICOAGULANT THERAPY
     Dosage: UNK
     Route: 048
  4. DEXAMETASON [Concomitant]
     Indication: IMMUNOSUPPRESSION
     Dosage: 100 MG, UNK
     Route: 065
  5. PREDNISONE [Concomitant]
     Indication: IMMUNOSUPPRESSION
     Dosage: 20 MG, UNK
     Route: 065
  6. PREDNISONE [Concomitant]
     Indication: IMMUNOSUPPRESSANT DRUG THERAPY
     Dosage: 10 MG, QD
     Route: 065
  7. TACROLIMUS [Concomitant]
     Indication: IMMUNOSUPPRESSANT DRUG THERAPY
     Dosage: TARGET SERUM LEVEL 8-10 NG/ML
     Route: 065
  8. MYCOPHENOLATE MOFETIL [Concomitant]
     Indication: IMMUNOSUPPRESSANT DRUG THERAPY
     Dosage: 500 MG, QID
     Route: 065

REACTIONS (3)
  - TRANSPLANT REJECTION [None]
  - URINARY TRACT INFECTION [None]
  - WOUND DEHISCENCE [None]
